FAERS Safety Report 4592270-4 (Version None)
Quarter: 2005Q1

REPORT INFORMATION
  Report Type: 
  Country: None (occurrence: None)
  Receive Date: 20050228
  Receipt Date: 20041110
  Transmission Date: 20050727
  Serious: No
  Sender: FDA-Public Use
  Company Number: US-BRISTOL-MYERS SQUIBB COMPANY-12762175

PATIENT
  Age: 40 Year
  Sex: Female
  Weight: 63 kg

DRUGS (2)
  1. ABILIFY [Suspect]
     Indication: PANIC ATTACK
     Route: 048
     Dates: start: 20041025, end: 20041110
  2. LORAZEPAM [Concomitant]

REACTIONS (6)
  - AGITATION [None]
  - AKINESIA [None]
  - CONSTIPATION [None]
  - FORMICATION [None]
  - MANIA [None]
  - RESTLESSNESS [None]
